FAERS Safety Report 15157694 (Version 1)
Quarter: 2018Q3

REPORT INFORMATION
  Report Type: Report from Study
  Country: US (occurrence: US)
  Receive Date: 20180718
  Receipt Date: 20180718
  Transmission Date: 20181010
  Serious: Yes (Other)
  Sender: FDA-Public Use
  Company Number: US-ROCHE-2126316

PATIENT
  Sex: Male
  Weight: 61.29 kg

DRUGS (1)
  1. OCREVUS [Suspect]
     Active Substance: OCRELIZUMAB
     Indication: RELAPSING MULTIPLE SCLEROSIS
     Dosage: ONGOING: UNKNOWN?300 MG ON 04/OCT/2017 AND 18/OCT/2017
     Route: 042
     Dates: start: 201710

REACTIONS (2)
  - Blood iron decreased [Unknown]
  - Full blood count decreased [Unknown]
